FAERS Safety Report 11663641 (Version 1)
Quarter: 2015Q4

REPORT INFORMATION
  Report Type: Spontaneous
  Country: ES (occurrence: ES)
  Receive Date: 20151027
  Receipt Date: 20151027
  Transmission Date: 20160304
  Serious: Yes (Death, Hospitalization, Other)
  Sender: FDA-Public Use
  Company Number: PHHY2015ES129702

PATIENT
  Age: 61 Year
  Sex: Male

DRUGS (1)
  1. VOTRIENT [Suspect]
     Active Substance: PAZOPANIB HYDROCHLORIDE
     Indication: METASTATIC RENAL CELL CARCINOMA
     Dosage: 800 MG, UNK
     Route: 048
     Dates: start: 20150803, end: 20150816

REACTIONS (19)
  - General physical health deterioration [Unknown]
  - Gastrointestinal hypomotility [Unknown]
  - Pain [Unknown]
  - Hypotension [Unknown]
  - Acute pulmonary oedema [Unknown]
  - Atrial flutter [Unknown]
  - Abdominal pain [Unknown]
  - Lymphocyte percentage decreased [Unknown]
  - Intestinal perforation [Fatal]
  - Diverticulitis [Unknown]
  - Protein total increased [Unknown]
  - Abscess intestinal [Unknown]
  - Pneumoperitoneum [Unknown]
  - Blood phosphorus decreased [Unknown]
  - Calcium ionised decreased [Unknown]
  - Blood glucose increased [Unknown]
  - C-reactive protein increased [Unknown]
  - Abdominal distension [Unknown]
  - Blood urea increased [Unknown]

NARRATIVE: CASE EVENT DATE: 20150816
